FAERS Safety Report 4708226-4 (Version None)
Quarter: 2005Q3

REPORT INFORMATION
  Report Type: 
  Country: None (occurrence: None)
  Receive Date: 20050707
  Receipt Date: 20050628
  Transmission Date: 20060218
  Serious: Yes (Other)
  Sender: FDA-Public Use
  Company Number: PHBS2005IN09385

PATIENT
  Age: 18 Year
  Sex: Male

DRUGS (4)
  1. CARBAMAZEPINE [Suspect]
     Indication: SIMPLE PARTIAL SEIZURES
     Dosage: 200 MG, TID
     Route: 065
  2. VALPROATE SODIUM [Suspect]
     Indication: SIMPLE PARTIAL SEIZURES
     Dosage: 200 MG, BID
     Route: 048
  3. CLOBAZAM [Concomitant]
     Dosage: 10 MG/DAY
     Route: 048
  4. CLOBAZAM [Concomitant]
     Dosage: 20 MG/DAY
     Route: 048

REACTIONS (13)
  - CONJUNCTIVAL HYPERAEMIA [None]
  - DERMATITIS EXFOLIATIVE [None]
  - DRUG HYPERSENSITIVITY [None]
  - ERYTHEMA [None]
  - EXFOLIATIVE RASH [None]
  - HYPERSENSITIVITY [None]
  - LYMPHADENOPATHY [None]
  - LYMPHOID TISSUE HYPERPLASIA [None]
  - OEDEMA PERIPHERAL [None]
  - PRURITUS [None]
  - PYREXIA [None]
  - RASH ERYTHEMATOUS [None]
  - RASH MACULAR [None]
